FAERS Safety Report 23850304 (Version 1)
Quarter: 2024Q2

REPORT INFORMATION
  Report Type: Report from Study
  Country: TW (occurrence: TW)
  Receive Date: 20240513
  Receipt Date: 20240513
  Transmission Date: 20240715
  Serious: Yes (Other)
  Sender: FDA-Public Use
  Company Number: TW-BAUSCH-BL-2024-007462

PATIENT
  Sex: Female

DRUGS (24)
  1. PIMECROLIMUS [Suspect]
     Active Substance: PIMECROLIMUS
     Indication: Rosacea
     Route: 065
  2. PIMECROLIMUS [Suspect]
     Active Substance: PIMECROLIMUS
     Indication: Nervous system disorder
  3. DEXAMETHASONE [Suspect]
     Active Substance: DEXAMETHASONE
     Indication: Rosacea
     Route: 065
  4. DEXAMETHASONE [Suspect]
     Active Substance: DEXAMETHASONE
     Indication: Nervous system disorder
  5. METRONIDAZOLE [Suspect]
     Active Substance: METRONIDAZOLE
     Indication: Rosacea
     Route: 065
  6. METRONIDAZOLE [Suspect]
     Active Substance: METRONIDAZOLE
     Indication: Nervous system disorder
  7. DOXYCYCLINE [Suspect]
     Active Substance: DOXYCYCLINE
     Indication: Rosacea
     Route: 065
  8. DOXYCYCLINE [Suspect]
     Active Substance: DOXYCYCLINE
     Indication: Nervous system disorder
  9. PROPRANOLOL [Suspect]
     Active Substance: PROPRANOLOL HYDROCHLORIDE
     Indication: Rosacea
     Route: 065
  10. PROPRANOLOL [Suspect]
     Active Substance: PROPRANOLOL HYDROCHLORIDE
     Indication: Nervous system disorder
  11. INDOMETHACIN [Suspect]
     Active Substance: INDOMETHACIN
     Indication: Rosacea
     Route: 065
  12. INDOMETHACIN [Suspect]
     Active Substance: INDOMETHACIN
     Indication: Nervous system disorder
  13. FEXOFENADINE [Suspect]
     Active Substance: FEXOFENADINE HYDROCHLORIDE
     Indication: Rosacea
     Route: 065
  14. FEXOFENADINE [Suspect]
     Active Substance: FEXOFENADINE HYDROCHLORIDE
     Indication: Nervous system disorder
  15. CETIRIZINE [Suspect]
     Active Substance: CETIRIZINE HYDROCHLORIDE
     Indication: Rosacea
     Route: 065
  16. CETIRIZINE [Suspect]
     Active Substance: CETIRIZINE HYDROCHLORIDE
     Indication: Nervous system disorder
  17. DOXEPIN [Suspect]
     Active Substance: DOXEPIN
     Indication: Rosacea
     Route: 065
  18. DOXEPIN [Suspect]
     Active Substance: DOXEPIN
     Indication: Nervous system disorder
  19. KETOTIFEN [Suspect]
     Active Substance: KETOTIFEN
     Indication: Rosacea
     Route: 065
  20. KETOTIFEN [Suspect]
     Active Substance: KETOTIFEN
     Indication: Nervous system disorder
  21. CLOBETASONE BUTYRATE [Suspect]
     Active Substance: CLOBETASONE BUTYRATE
     Indication: Rosacea
     Route: 065
  22. CLOBETASONE BUTYRATE [Suspect]
     Active Substance: CLOBETASONE BUTYRATE
     Indication: Nervous system disorder
  23. BETAMETHASONE VALERATE [Suspect]
     Active Substance: BETAMETHASONE VALERATE
     Indication: Rosacea
     Route: 065
  24. BETAMETHASONE VALERATE [Suspect]
     Active Substance: BETAMETHASONE VALERATE
     Indication: Nervous system disorder

REACTIONS (2)
  - Treatment failure [Unknown]
  - Off label use [Unknown]
